FAERS Safety Report 5917040-3 (Version None)
Quarter: 2008Q4

REPORT INFORMATION
  Report Type: 
  Country: None (occurrence: None)
  Receive Date: 20081014
  Receipt Date: 20081006
  Transmission Date: 20090506
  Serious: Yes (Other)
  Sender: FDA-Public Use
  Company Number: CA-WYE-G01827008

PATIENT
  Sex: Male
  Weight: 180 kg

DRUGS (3)
  1. EFFEXOR XR [Suspect]
     Indication: ANXIETY
     Route: 048
  2. EFFEXOR XR [Interacting]
     Indication: DEPRESSION
  3. ETHANOL [Interacting]
     Dosage: 10 OZ. OF VODCA AND SEVERAL GLASSES OF BEER AND WINE
     Route: 048

REACTIONS (3)
  - ALCOHOL INTERACTION [None]
  - AMNESIA [None]
  - DISTURBANCE IN SOCIAL BEHAVIOUR [None]
